FAERS Safety Report 4396711-7 (Version None)
Quarter: 2004Q3

REPORT INFORMATION
  Report Type: 
  Country: None (occurrence: None)
  Receive Date: 20040714
  Receipt Date: 20040214
  Transmission Date: 20050211
  Serious: Yes (Hospitalization)
  Sender: FDA-Public Use
  Company Number: PE-BRISTOL-MYERS SQUIBB COMPANY-12508289

PATIENT
  Age: 50 Year
  Sex: Female

DRUGS (8)
  1. ABATACEPT [Concomitant]
     Indication: RHEUMATOID ARTHRITIS
     Route: 042
     Dates: start: 20030514
  2. METHOTREXATE [Suspect]
     Route: 048
     Dates: start: 20030104
  3. PREDNISONE [Concomitant]
     Dates: start: 20021201, end: 20040214
  4. CYCLOBENZAPRINE HCL [Concomitant]
     Dates: start: 20031203, end: 20040214
  5. BEER YEAST [Concomitant]
     Dates: start: 20031213, end: 20040214
  6. FOLIC ACID [Concomitant]
     Dates: start: 20030416, end: 20040214
  7. CALCIUM CARBONATE [Concomitant]
     Dates: start: 19990101, end: 20040214
  8. VITAMIN D [Concomitant]
     Dates: start: 19990101, end: 20040214

REACTIONS (1)
  - PNEUMONIA [None]
